FAERS Safety Report 8018991-9 (Version None)
Quarter: 2011Q4

REPORT INFORMATION
  Report Type: 
  Country: None (occurrence: None)
  Receive Date: 20111227
  Receipt Date: 20111219
  Transmission Date: 20120403
  Serious: Yes (Other)
  Sender: FDA-Public Use
  Company Number: ADR-2011-11225

PATIENT
  Age: 41 Year
  Sex: Female

DRUGS (5)
  1. FENTANYL [Concomitant]
  2. BUPIVACAINE HCL [Concomitant]
  3. CLONIDINE [Concomitant]
  4. LIORESAL [Suspect]
     Indication: NEOPLASM MALIGNANT
     Dosage: 208.84 MCG, DAILY, INTR
     Route: 037
  5. LIORESAL [Suspect]
     Indication: CANCER PAIN
     Dosage: 208.84 MCG, DAILY, INTR
     Route: 037

REACTIONS (2)
  - INTRACRANIAL HYPOTENSION [None]
  - SEROMA [None]
